FAERS Safety Report 23466182 (Version 1)
Quarter: 2024Q1

REPORT INFORMATION
  Report Type: Spontaneous
  Country: US (occurrence: US)
  Receive Date: 20240201
  Receipt Date: 20240201
  Transmission Date: 20240410
  Serious: No
  Sender: FDA-Public Use
  Company Number: US-DAIICHI SANKYO, INC.-DSU-2024-103882AA

PATIENT
  Sex: Male

DRUGS (4)
  1. ENHERTU [Suspect]
     Active Substance: FAM-TRASTUZUMAB DERUXTECAN-NXKI
     Indication: HER2 positive salivary gland cancer
     Dosage: 100 MG
     Route: 065
  2. ENHERTU [Suspect]
     Active Substance: FAM-TRASTUZUMAB DERUXTECAN-NXKI
     Indication: HER2 protein overexpression
  3. BICALUTAMIDE [Concomitant]
     Active Substance: BICALUTAMIDE
     Indication: HER2 positive salivary gland cancer
     Dosage: UNK
     Route: 065
  4. GOSERELIN [Concomitant]
     Active Substance: GOSERELIN
     Indication: HER2 positive salivary gland cancer
     Dosage: UNK
     Route: 065

REACTIONS (5)
  - Central nervous system lesion [Not Recovered/Not Resolved]
  - Drug ineffective for unapproved indication [Unknown]
  - Drug effective for unapproved indication [Recovered/Resolved]
  - Metastases to central nervous system [Not Recovered/Not Resolved]
  - Off label use [Unknown]
